FAERS Safety Report 6369049-6 (Version None)
Quarter: 2009Q3

REPORT INFORMATION
  Report Type: 
  Country: None (occurrence: None)
  Receive Date: 20090922
  Receipt Date: 20090914
  Transmission Date: 20100115
  Serious: Yes (Hospitalization)
  Sender: FDA-Public Use
  Company Number: PHHO2007GB16907

PATIENT
  Sex: Female
  Weight: 73.6 kg

DRUGS (4)
  1. NEORAL [Suspect]
     Indication: HEART TRANSPLANT
     Dosage: 100 MG, BID
     Route: 048
     Dates: start: 20070704
  2. MYCOPHENOLATE MOFETIL [Suspect]
     Indication: HEART TRANSPLANT
     Dosage: 500 MG/DAILY
     Route: 048
     Dates: start: 20070704, end: 20070829
  3. MYCOPHENOLATE MOFETIL [Suspect]
     Dosage: NO TREATMENT
     Dates: start: 20070830
  4. MYCOPHENOLATE MOFETIL [Suspect]
     Dosage: 750 MG, BID
     Route: 048
     Dates: start: 20090701

REACTIONS (7)
  - ANXIETY [None]
  - CLOSTRIDIAL INFECTION [None]
  - DIARRHOEA [None]
  - DRUG INEFFECTIVE [None]
  - FATIGUE [None]
  - HEART TRANSPLANT REJECTION [None]
  - MALAISE [None]
